FAERS Safety Report 15940945 (Version 1)
Quarter: 2019Q1

REPORT INFORMATION
  Report Type: Spontaneous
  Country: US (occurrence: US)
  Receive Date: 20190208
  Receipt Date: 20190208
  Transmission Date: 20190417
  Serious: Yes (Hospitalization, Other)
  Sender: FDA-Public Use
  Company Number: US-UNITED THERAPEUTICS-UNT-2019-002080

PATIENT
  Age: 4 Year
  Sex: Male

DRUGS (2)
  1. UNITUXIN [Suspect]
     Active Substance: DINUTUXIMAB
     Indication: NEUROBLASTOMA
     Dosage: UNK
     Route: 041
  2. INTERLEUKIN-2 [Suspect]
     Active Substance: ALDESLEUKIN
     Indication: NEUROBLASTOMA
     Dosage: UNK
     Route: 065

REACTIONS (4)
  - Pulmonary hypertension [Recovered/Resolved]
  - Tachypnoea [Unknown]
  - Tachycardia [Unknown]
  - Pyrexia [Unknown]
